FAERS Safety Report 10258287 (Version 1)
Quarter: 2014Q2

REPORT INFORMATION
  Report Type: Spontaneous
  Country: US (occurrence: None)
  Receive Date: 20140623
  Receipt Date: 20140623
  Transmission Date: 20141212
  Serious: Yes (Other)
  Sender: FDA-Public Use
  Company Number: None

PATIENT
  Age: 77 Year
  Sex: Male

DRUGS (5)
  1. ATORVASTATIN [Suspect]
     Indication: HYPERCHOLESTEROLAEMIA
     Route: 048
     Dates: start: 20070101, end: 20140403
  2. OMEPRAZOLE [Concomitant]
  3. DIOVAN HCL [Concomitant]
  4. RESVERATROL [Concomitant]
  5. PHENOBARBITAL [Concomitant]

REACTIONS (1)
  - Ophthalmoplegia [None]
